FAERS Safety Report 8145734-0 (Version None)
Quarter: 2012Q1

REPORT INFORMATION
  Report Type: 
  Country: None (occurrence: None)
  Receive Date: 20120217
  Receipt Date: 20120207
  Transmission Date: 20120608
  Serious: Yes (Hospitalization)
  Sender: FDA-Public Use
  Company Number: DE-ELI_LILLY_AND_COMPANY-DE201112007641

PATIENT
  Sex: Female

DRUGS (11)
  1. GLIMEPIRID [Concomitant]
     Dosage: UNK
  2. CITALOPRAM HYDROBROMIDE [Concomitant]
     Dosage: UNK
  3. CAPTOHEXAL [Concomitant]
     Dosage: 2 DF, UNKNOWN
  4. METFORMIN HCL [Concomitant]
     Dosage: 1000 MG, UNKNOWN
     Dates: end: 20120101
  5. NITRENDIPIN [Concomitant]
     Dosage: 2 MG, UNKNOWN
  6. BYDUREON [Suspect]
     Indication: DIABETES MELLITUS
     Dosage: 2 MG, UNKNOWN
     Route: 058
     Dates: start: 20111116
  7. FUROSEMIDE [Concomitant]
     Dosage: 4 MG, UNKNOWN
  8. BRISERIN N [Concomitant]
     Dosage: UNK
  9. METFORMIN HCL [Concomitant]
     Dosage: UNK, UNKNOWN
     Dates: start: 20120120
  10. SIMVASTATIN [Concomitant]
     Dosage: UNK
  11. ESOMEPRAZOL                        /01479301/ [Concomitant]
     Dosage: UNK

REACTIONS (15)
  - CHILLS [None]
  - MALAISE [None]
  - OEDEMA MUCOSAL [None]
  - OROPHARYNGEAL PAIN [None]
  - PYREXIA [None]
  - PNEUMONIA [None]
  - DIARRHOEA [None]
  - GASTROINTESTINAL DISORDER [None]
  - ASTHENIA [None]
  - COUGH [None]
  - NASOPHARYNGITIS [None]
  - VOMITING [None]
  - WEIGHT DECREASED [None]
  - HYPOPHAGIA [None]
  - BLOOD GLUCOSE INCREASED [None]
